FAERS Safety Report 4925243-X (Version None)
Quarter: 2006Q1

REPORT INFORMATION
  Report Type: 
  Country: None (occurrence: None)
  Receive Date: 20060222
  Receipt Date: 20060222
  Transmission Date: 20060701
  Serious: No
  Sender: FDA-Public Use
  Company Number: None

PATIENT
  Age: 46 Year
  Weight: 88.905 kg

DRUGS (9)
  1. MORPHINE SULFATE [Suspect]
     Indication: PAIN
     Dosage: PCA CONT IV
     Route: 042
     Dates: start: 20060119, end: 20060120
  2. PCA PUMP COUN [Concomitant]
  3. PREMARIN VAG [Concomitant]
  4. PERCOCET [Concomitant]
  5. COMPAZINE [Concomitant]
  6. MORPHINE [Concomitant]
  7. IV D5 LR1000 [Concomitant]
  8. PERCOCET [Concomitant]
  9. ZOFRAN [Concomitant]

REACTIONS (2)
  - ERYTHEMA [None]
  - PRURITUS [None]
